FAERS Safety Report 4596705-2 (Version None)
Quarter: 2005Q1

REPORT INFORMATION
  Report Type: 
  Country: None (occurrence: None)
  Receive Date: 20050302
  Receipt Date: 20050224
  Transmission Date: 20050727
  Serious: Yes (Hospitalization)
  Sender: FDA-Public Use
  Company Number: CA-GLAXOSMITHKLINE-A0547410A

PATIENT
  Age: 28 Year
  Sex: Female

DRUGS (1)
  1. ZIAGEN [Suspect]
     Indication: DRUG USE FOR UNKNOWN INDICATION
     Route: 048
     Dates: end: 20050122

REACTIONS (7)
  - ABDOMINAL PAIN [None]
  - CHOLESTASIS [None]
  - DYSPEPSIA [None]
  - HEPATOMEGALY [None]
  - LACTIC ACIDOSIS [None]
  - RENAL FAILURE [None]
  - TACHYPNOEA [None]
